FAERS Safety Report 25357293 (Version 1)
Quarter: 2025Q2

REPORT INFORMATION
  Report Type: Spontaneous
  Country: GB (occurrence: GB)
  Receive Date: 20250526
  Receipt Date: 20250526
  Transmission Date: 20250716
  Serious: Yes (Death, Other)
  Sender: AMGEN
  Company Number: GB-AMGEN-GBRSP2025101080

PATIENT

DRUGS (1)
  1. CARFILZOMIB [Suspect]
     Active Substance: CARFILZOMIB
     Indication: Plasma cell myeloma refractory
     Route: 065

REACTIONS (9)
  - COVID-19 [Fatal]
  - Thrombocytopenia [Unknown]
  - Lower respiratory tract infection [Unknown]
  - Keratopathy [Unknown]
  - Blepharitis [Unknown]
  - Eye pain [Unknown]
  - Vision blurred [Unknown]
  - Dry eye [Unknown]
  - Pyrexia [Unknown]
